FAERS Safety Report 8176526-4 (Version None)
Quarter: 2012Q1

REPORT INFORMATION
  Report Type: 
  Country: None (occurrence: None)
  Receive Date: 20120228
  Receipt Date: 20120221
  Transmission Date: 20120608
  Serious: Yes (Other)
  Sender: FDA-Public Use
  Company Number: ADR-2012-00413

PATIENT
  Sex: Male

DRUGS (2)
  1. LIORESAL [Suspect]
     Indication: CEREBRAL PALSY
  2. LIORESAL [Suspect]
     Indication: MUSCLE SPASTICITY

REACTIONS (5)
  - DEVICE RELATED INFECTION [None]
  - SHUNT INFECTION [None]
  - OSTEOMYELITIS [None]
  - CSF CULTURE POSITIVE [None]
  - BACTERIAL INFECTION [None]
